FAERS Safety Report 8789185 (Version 1)
Quarter: 2012Q4

REPORT INFORMATION
  Report Type: Spontaneous
  Country: US (occurrence: None)
  Receive Date: 20120910
  Receipt Date: 20120910
  Transmission Date: 20130627
  Serious: Yes (Hospitalization)
  Sender: FDA-Public Use
  Company Number: None

PATIENT
  Age: 76 Year
  Sex: Female
  Weight: 90 kg

DRUGS (13)
  1. DIGOXIN [Suspect]
     Indication: ATRIAL FIBRILLATION
     Route: 048
     Dates: start: 20111213, end: 20120117
  2. OXYCODONE/ACETAMINOPHEN [Concomitant]
  3. ALPRAZOLAM [Concomitant]
  4. WARFARIN [Concomitant]
  5. CARBIDOPA/LEVODOPA [Concomitant]
  6. FLUTICASE NASAL SPRAY [Concomitant]
  7. GABAPENTIN [Concomitant]
  8. GLIPIZIDE [Concomitant]
  9. SLIDING SCALE INSULIN [Concomitant]
  10. LEVOTHYROXINE [Concomitant]
  11. PANTOPRAZOLE [Concomitant]
  12. RALOXIFENE [Concomitant]
  13. SITAGLIPTIN [Concomitant]

REACTIONS (9)
  - Asthenia [None]
  - Fall [None]
  - Nausea [None]
  - Bradycardia [None]
  - Cardioactive drug level increased [None]
  - Urinary tract infection [None]
  - Toxicity to various agents [None]
  - Dementia [None]
  - Anxiety [None]
